FAERS Safety Report 10137481 (Version 1)
Quarter: 2014Q2

REPORT INFORMATION
  Report Type: Spontaneous
  Country: US (occurrence: None)
  Receive Date: 20140428
  Receipt Date: 20140428
  Transmission Date: 20141212
  Serious: No
  Sender: FDA-Public Use
  Company Number: None

PATIENT
  Age: 62 Year
  Sex: Female

DRUGS (7)
  1. TECFIDERA 240MG BIOGEN IDEC [Suspect]
     Indication: MULTIPLE SCLEROSIS
     Dosage: 1 CAP BID ORAL
     Dates: start: 20130702, end: 20140423
  2. BACLOFEN [Concomitant]
  3. FLUOXETINE [Concomitant]
  4. SINGULAR [Concomitant]
  5. MULTI-VITAMIN [Concomitant]
  6. B-12 [Concomitant]
  7. OMEPRAZOLE [Concomitant]

REACTIONS (1)
  - Fungal infection [None]
